FAERS Safety Report 9995019 (Version 1)
Quarter: 2014Q1

REPORT INFORMATION
  Report Type: Report from Study
  Country: US (occurrence: US)
  Receive Date: 20140311
  Receipt Date: 20140311
  Transmission Date: 20141002
  Serious: Yes (Other)
  Sender: FDA-Public Use
  Company Number: US-ROCHE-1357523

PATIENT
  Sex: Male

DRUGS (20)
  1. LUCENTIS [Suspect]
     Indication: RETINAL VEIN OCCLUSION
     Route: 050
  2. LUCENTIS [Suspect]
     Indication: MACULAR OEDEMA
     Route: 050
     Dates: start: 20130820
  3. LUCENTIS [Suspect]
     Indication: AGE-RELATED MACULAR DEGENERATION
     Route: 050
     Dates: start: 20131016
  4. LUCENTIS [Suspect]
     Route: 050
     Dates: start: 20131204
  5. AVASTIN [Suspect]
     Indication: RETINAL VEIN OCCLUSION
     Route: 050
  6. AVASTIN [Suspect]
     Route: 050
     Dates: start: 20120413
  7. AVASTIN [Suspect]
     Route: 050
     Dates: start: 20120515
  8. AVASTIN [Suspect]
     Route: 050
     Dates: start: 20120616
  9. AVASTIN [Suspect]
     Route: 050
     Dates: start: 20120713
  10. AVASTIN [Suspect]
     Route: 050
     Dates: start: 20121106
  11. AVASTIN [Suspect]
     Route: 050
     Dates: start: 20130219
  12. AVASTIN [Suspect]
     Route: 050
     Dates: start: 20130424
  13. AVASTIN [Suspect]
     Route: 050
     Dates: start: 20130521
  14. AVASTIN [Suspect]
     Route: 050
     Dates: start: 20120619
  15. EYEVITE [Concomitant]
  16. RANITIDINE HCL [Concomitant]
  17. TRIHEXYPHENIDYL HCL [Concomitant]
  18. LOVASTATIN [Concomitant]
  19. CARBIDOPA/LEVODOPA [Concomitant]
     Dosage: 25MG-100MG
     Route: 065
  20. AMANTADINE HCL [Concomitant]

REACTIONS (6)
  - Retinal oedema [Recovering/Resolving]
  - Retinal haemorrhage [Recovering/Resolving]
  - Cutis laxa [Unknown]
  - Pinguecula [Unknown]
  - Cataract nuclear [Unknown]
  - Cataract subcapsular [Unknown]
